FAERS Safety Report 12501469 (Version 1)
Quarter: 2016Q2

REPORT INFORMATION
  Report Type: Spontaneous
  Country: US (occurrence: US)
  Receive Date: 20160627
  Receipt Date: 20160627
  Transmission Date: 20160815
  Serious: No
  Sender: FDA-Public Use
  Company Number: US-BAYER-2016-124968

PATIENT
  Age: 64 Year
  Sex: Female
  Weight: 59.41 kg

DRUGS (2)
  1. MIRALAX [Suspect]
     Active Substance: POLYETHYLENE GLYCOL 3350
     Indication: COLONOSCOPY
     Dosage: UNK, MIXED WHOLE BOTTLE WITH 64OZ OF GATORADE AND DRANK
     Route: 048
     Dates: start: 20160619, end: 20160619
  2. DULCOLAX (DOCUSATE SODIUM) [Concomitant]
     Active Substance: DOCUSATE SODIUM
     Dosage: 4 DF, ONCE

REACTIONS (2)
  - Off label use [None]
  - Product use issue [None]

NARRATIVE: CASE EVENT DATE: 20160619
